FAERS Safety Report 6537667-8 (Version None)
Quarter: 2010Q1

REPORT INFORMATION
  Report Type: 
  Country: None (occurrence: None)
  Receive Date: 20100114
  Receipt Date: 20100108
  Transmission Date: 20100710
  Serious: Yes (Hospitalization)
  Sender: FDA-Public Use
  Company Number: B0625271A

PATIENT
  Sex: Female
  Weight: 47 kg

DRUGS (5)
  1. MELPHALAN HYDROCHLORIDE [Suspect]
     Indication: MULTIPLE MYELOMA
     Dosage: 5MG PER DAY
     Dates: start: 20091218
  2. THALIDOMIDE [Suspect]
     Indication: MULTIPLE MYELOMA
     Dosage: 100MG PER DAY
     Route: 048
     Dates: start: 20091218
  3. PREDNISONE [Suspect]
     Indication: MULTIPLE MYELOMA
     Dosage: 90MG PER DAY
     Dates: start: 20091218
  4. OXYNORM [Concomitant]
     Indication: PAIN
     Dosage: 30MG SIX TIMES PER DAY
     Route: 048
  5. ZOMETA [Concomitant]
     Indication: PAIN
     Route: 030

REACTIONS (2)
  - DYSPNOEA [None]
  - PULMONARY EMBOLISM [None]
